FAERS Safety Report 11900957 (Version 2)
Quarter: 2016Q1

REPORT INFORMATION
  Report Type: Report from Study
  Country: US (occurrence: US)
  Receive Date: 20160108
  Receipt Date: 20160302
  Transmission Date: 20160526
  Serious: Yes (Hospitalization)
  Sender: FDA-Public Use
  Company Number: US-BIOGEN-2016BI00167214

PATIENT
  Age: 66 Year
  Sex: Female

DRUGS (2)
  1. AVONEX [Suspect]
     Active Substance: INTERFERON BETA-1A
     Indication: MULTIPLE SCLEROSIS
     Route: 030
     Dates: start: 19990501, end: 20040501
  2. AVONEX [Interacting]
     Active Substance: INTERFERON BETA-1A
     Route: 030
     Dates: start: 20101119

REACTIONS (1)
  - Spinal laminectomy [Recovered/Resolved]

NARRATIVE: CASE EVENT DATE: 20151020
